FAERS Safety Report 24428121 (Version 1)
Quarter: 2024Q4

REPORT INFORMATION
  Report Type: Spontaneous
  Country: US (occurrence: US)
  Receive Date: 20241011
  Receipt Date: 20241011
  Transmission Date: 20250114
  Serious: Yes (Other)
  Sender: ELI LILLY AND CO
  Company Number: US-ELI_LILLY_AND_COMPANY-US202410005643

PATIENT
  Age: 52 Year
  Sex: Female

DRUGS (6)
  1. MOUNJARO [Suspect]
     Active Substance: TIRZEPATIDE
     Indication: Diabetes mellitus
     Dosage: UNK UNK, UNKNOWN
     Route: 065
  2. TRULICITY [Suspect]
     Active Substance: DULAGLUTIDE
     Indication: Diabetes mellitus
     Dosage: UNK UNK, UNKNOWN
     Route: 065
  3. OZEMPIC [Suspect]
     Active Substance: SEMAGLUTIDE
     Indication: Diabetes mellitus
     Dosage: UNK UNK, UNKNOWN
     Route: 065
  4. JYNARQUE [Concomitant]
     Active Substance: TOLVAPTAN
     Indication: Congenital cystic kidney disease
     Dosage: UNK UNK, UNKNOWN
     Route: 065
     Dates: start: 20230919
  5. JYNARQUE [Concomitant]
     Active Substance: TOLVAPTAN
     Dosage: UNK UNK, UNKNOWN
     Route: 065
  6. JYNARQUE [Concomitant]
     Active Substance: TOLVAPTAN
     Dosage: UNK UNK, UNKNOWN
     Route: 065

REACTIONS (4)
  - Transaminases increased [Unknown]
  - Feeding disorder [Recovering/Resolving]
  - Renal impairment [Unknown]
  - Nausea [Recovering/Resolving]
